FAERS Safety Report 7756415-7 (Version None)
Quarter: 2011Q3

REPORT INFORMATION
  Report Type: 
  Country: None (occurrence: None)
  Receive Date: 20110916
  Receipt Date: 20110912
  Transmission Date: 20111222
  Serious: Yes (Death)
  Sender: FDA-Public Use
  Company Number: US-SANOFI-AVENTIS-2011SA059123

PATIENT
  Age: 81 Year
  Sex: Female

DRUGS (1)
  1. LANTUS [Suspect]
     Route: 058

REACTIONS (1)
  - CARDIOVASCULAR DISORDER [None]
